FAERS Safety Report 5629788-9 (Version None)
Quarter: 2008Q1

REPORT INFORMATION
  Report Type: 
  Country: None (occurrence: None)
  Receive Date: 20080218
  Receipt Date: 20080206
  Transmission Date: 20080703
  Serious: Yes (Hospitalization)
  Sender: FDA-Public Use
  Company Number: US-ASTRAZENECA-2007UW12497

PATIENT
  Age: 34 Year
  Sex: Female
  Weight: 91.4 kg

DRUGS (5)
  1. SEROQUEL [Suspect]
     Indication: INSOMNIA
     Dosage: 25MG, 100MG, 200MG AND 300MG
     Route: 048
     Dates: end: 20060301
  2. SEROQUEL [Suspect]
     Indication: BIPOLAR DISORDER
     Dosage: 25MG, 100MG, 200MG AND 300MG
     Route: 048
     Dates: end: 20060301
  3. ZYPREXA [Suspect]
     Indication: INSOMNIA
     Dates: start: 19990101
  4. ZYPREXA [Suspect]
     Indication: BIPOLAR DISORDER
     Dates: start: 19990101
  5. XARVEX [Concomitant]
     Dates: start: 19980101

REACTIONS (4)
  - CARDIOMYOPATHY [None]
  - HOSPITALISATION [None]
  - TYPE 2 DIABETES MELLITUS [None]
  - UPPER LIMB FRACTURE [None]
